FAERS Safety Report 17201398 (Version 1)
Quarter: 2020Q1

REPORT INFORMATION
  Report Type: Spontaneous
  Country: US (occurrence: US)
  Receive Date: 20191224
  Receipt Date: 20191224
  Transmission Date: 20200409
  Serious: Yes (Death)
  Sender: FDA-Public Use
  Company Number: None

PATIENT
  Age: 41 Year
  Sex: Female
  Weight: 72 kg

DRUGS (4)
  1. GABAPENTIN. [Suspect]
     Active Substance: GABAPENTIN
     Indication: NEURALGIA
     Route: 048
  2. ORAL METHADONE [Concomitant]
  3. METHADONE [Suspect]
     Active Substance: METHADONE HYDROCHLORIDE
  4. OMEPRAZOLE. [Concomitant]
     Active Substance: OMEPRAZOLE

REACTIONS (6)
  - Diarrhoea [None]
  - Dyspnoea [None]
  - Influenza like illness [None]
  - Vomiting [None]
  - Pain [None]
  - Hyperhidrosis [None]

NARRATIVE: CASE EVENT DATE: 20191214
